FAERS Safety Report 9337204 (Version 1)
Quarter: 2013Q2

REPORT INFORMATION
  Report Type: Report from Study
  Country: VE (occurrence: VE)
  Receive Date: 20130607
  Receipt Date: 20130607
  Transmission Date: 20140414
  Serious: Yes (Death, Hospitalization, Other)
  Sender: FDA-Public Use
  Company Number: VE-ABBOTT-13P-178-1100735-00

PATIENT
  Age: 62 Year
  Sex: Female
  Weight: 90 kg

DRUGS (1)
  1. ZEMPLAR [Suspect]
     Indication: RENAL FAILURE CHRONIC
     Route: 042
     Dates: start: 20130405, end: 20130527

REACTIONS (5)
  - Cardio-respiratory arrest [Fatal]
  - Hypovolaemic shock [Fatal]
  - Vaginal haemorrhage [Not Recovered/Not Resolved]
  - Metastases to pelvis [Unknown]
  - Metastases to lymph nodes [Unknown]
